FAERS Safety Report 18523353 (Version 4)
Quarter: 2020Q4

REPORT INFORMATION
  Report Type: Spontaneous
  Country: FR (occurrence: FR)
  Receive Date: 20201119
  Receipt Date: 20201225
  Transmission Date: 20210114
  Serious: Yes (Hospitalization, Other)
  Sender: FDA-Public Use
  Company Number: NVSC2020FR307377

PATIENT
  Age: 30 Year
  Sex: Male

DRUGS (2)
  1. ACETAMINOPHEN (PARACETAMOL) [Suspect]
     Active Substance: ACETAMINOPHEN
     Indication: ALCOHOLIC HANGOVER
     Dosage: UNK, MORE THAN 2 BOXES
     Route: 065
     Dates: start: 20200621
  2. ACETAMINOPHEN (PARACETAMOL) [Interacting]
     Active Substance: ACETAMINOPHEN
     Indication: MALAISE

REACTIONS (5)
  - Hepatitis acute [Recovering/Resolving]
  - Toxicity to various agents [Recovering/Resolving]
  - Overdose [Recovering/Resolving]
  - Accidental poisoning [Unknown]
  - Alcohol interaction [Recovering/Resolving]

NARRATIVE: CASE EVENT DATE: 20200621
